FAERS Safety Report 6809321-6 (Version None)
Quarter: 2010Q2

REPORT INFORMATION
  Report Type: 
  Country: None (occurrence: None)
  Receive Date: 20100625
  Receipt Date: 20100611
  Transmission Date: 20101027
  Serious: Yes (Death, Hospitalization)
  Sender: FDA-Public Use
  Company Number: 2010AL003536

PATIENT
  Age: 67 Year
  Sex: Male

DRUGS (7)
  1. IBUPROFEN ORAL SUSPENSION USP, 100 MG/ 5 ML (RX) (ALPHARMA) (IBUPROFEN [Suspect]
     Dosage: 1.2 GM; PO
     Route: 048
     Dates: start: 20090101
  2. AMIAS [Concomitant]
  3. DALTEPARIN SODIUM [Concomitant]
  4. ADALAT [Concomitant]
  5. SIMVASTATIN [Concomitant]
  6. PARACETAMOL [Concomitant]
  7. ERLOTINIB [Concomitant]

REACTIONS (3)
  - LUNG ADENOCARCINOMA [None]
  - PLEURAL EFFUSION [None]
  - RENAL FAILURE [None]
